FAERS Safety Report 13941926 (Version 1)
Quarter: 2017Q3

REPORT INFORMATION
  Report Type: Spontaneous
  Country: GB (occurrence: GB)
  Receive Date: 20170906
  Receipt Date: 20170906
  Transmission Date: 20171127
  Serious: Yes (Hospitalization)
  Sender: FDA-Public Use
  Company Number: GB-SA-2017SA162914

PATIENT
  Sex: Male
  Weight: 2.7 kg

DRUGS (2)
  1. NOVORAPID [Suspect]
     Active Substance: INSULIN ASPART
     Dosage: DOSE:14 UNIT(S)
     Route: 064
     Dates: start: 20110419
  2. LANTUS [Suspect]
     Active Substance: INSULIN GLARGINE
     Dosage: DOSE:24 UNIT(S)
     Route: 064
     Dates: start: 20110419

REACTIONS (4)
  - Hypoglycaemia [Unknown]
  - Respiratory distress [Unknown]
  - Jaundice [Unknown]
  - Foetal exposure during pregnancy [Unknown]

NARRATIVE: CASE EVENT DATE: 20161103
